FAERS Safety Report 5131529-9 (Version None)
Quarter: 2006Q4

REPORT INFORMATION
  Report Type: 
  Country: None (occurrence: None)
  Receive Date: 20061020
  Receipt Date: 20060927
  Transmission Date: 20070319
  Serious: Yes (Other)
  Sender: FDA-Public Use
  Company Number: TW-ROCHE-464864

PATIENT
  Age: 62 Year
  Sex: Male
  Weight: 51 kg

DRUGS (6)
  1. PEGASYS [Suspect]
     Indication: HEPATITIS B
     Route: 065
     Dates: start: 20060516, end: 20060829
  2. SEDATIVES [Concomitant]
     Indication: INSOMNIA
  3. MUSCLE RELAXANTS [Concomitant]
  4. ANALGESIC NOS [Concomitant]
     Dosage: DRUG WAS REPORTED AS ANTI-PAIN/ANTI-INFLAMMATORY.
     Dates: end: 20060315
  5. ANTI-INFLAMMATORY [Concomitant]
     Dosage: DRUG REPORTED AS ANTI-PAIN/ANTI-INFLAMMATORY.
     Dates: end: 20060315
  6. CHINESE MEDICINE NOS [Concomitant]
     Indication: HEPATITIS B

REACTIONS (6)
  - ARTHRALGIA [None]
  - GAIT DISTURBANCE [None]
  - GENERAL PHYSICAL HEALTH DETERIORATION [None]
  - MUSCULAR WEAKNESS [None]
  - OSTEONECROSIS [None]
  - SUICIDE ATTEMPT [None]
